FAERS Safety Report 7782699-5 (Version None)
Quarter: 2011Q3

REPORT INFORMATION
  Report Type: 
  Country: None (occurrence: None)
  Receive Date: 20110926
  Receipt Date: 20110926
  Transmission Date: 20111222
  Serious: No
  Sender: FDA-Public Use
  Company Number: None

PATIENT
  Sex: Female
  Weight: 74.8435 kg

DRUGS (1)
  1. POLYETHYLENE GLYCOL 3350 [Suspect]
     Indication: COLONOSCOPY
     Dosage: 17G/15 MIN UNTIL EMPTY

REACTIONS (2)
  - NAUSEA [None]
  - VOMITING PROJECTILE [None]
